FAERS Safety Report 11794517 (Version 1)
Quarter: 2015Q4

REPORT INFORMATION
  Report Type: Spontaneous
  Country: DE (occurrence: DE)
  Receive Date: 20151202
  Receipt Date: 20151202
  Transmission Date: 20160305
  Serious: Yes (Other)
  Sender: FDA-Public Use
  Company Number: DE-TEVA-611900GER

PATIENT
  Sex: Female
  Weight: 59 kg

DRUGS (5)
  1. ACTRAPID [Concomitant]
     Active Substance: INSULIN HUMAN
     Indication: GESTATIONAL DIABETES
     Route: 058
     Dates: start: 20150625, end: 20150725
  2. PROTAPHANE [Concomitant]
     Active Substance: INSULIN HUMAN
     Indication: GESTATIONAL DIABETES
     Dosage: 3 IU (INTERNATIONAL UNIT) DAILY;
     Route: 058
     Dates: start: 20150603, end: 20150725
  3. FEMIBION [Concomitant]
     Active Substance: VITAMINS
     Indication: PROPHYLAXIS OF NEURAL TUBE DEFECT
     Route: 048
     Dates: start: 20141213, end: 20150725
  4. VENLAFAXINE [Suspect]
     Active Substance: VENLAFAXINE HYDROCHLORIDE
     Indication: DEPRESSION
     Dosage: 225 MG/D / DOSAGE REDUCTION TO 150MG/D FROM GW 31+4
     Route: 048
     Dates: start: 20141030, end: 20150725
  5. CYTOTEC [Concomitant]
     Active Substance: MISOPROSTOL
     Indication: LABOUR INDUCTION
     Route: 048
     Dates: start: 20150724, end: 20150725

REACTIONS (2)
  - Foetal death [Recovered/Resolved]
  - Gestational diabetes [Recovering/Resolving]

NARRATIVE: CASE EVENT DATE: 2015
